FAERS Safety Report 6341905-4 (Version None)
Quarter: 2009Q3

REPORT INFORMATION
  Report Type: 
  Country: None (occurrence: None)
  Receive Date: 20090904
  Receipt Date: 20090827
  Transmission Date: 20100115
  Serious: Yes (Other)
  Sender: FDA-Public Use
  Company Number: GB-WYE-H10838509

PATIENT
  Sex: Female

DRUGS (5)
  1. AMIODARONE [Suspect]
     Dosage: DOSE UNKNOWN
     Route: 065
  2. SUTENT [Suspect]
     Indication: GASTROINTESTINAL STROMAL TUMOUR
     Dosage: DOSE UNKNOWN
     Route: 065
     Dates: start: 20090626, end: 20090724
  3. ENOXAPARIN SODIUM [Suspect]
     Dosage: DOSE UNKNOWN
     Route: 065
  4. GABAPENTIN [Suspect]
     Dosage: DOSE UNKNOWN
     Route: 065
  5. CLONAZEPAM [Suspect]
     Dosage: DOSE UNKNOWN
     Route: 065

REACTIONS (2)
  - LEUKOPENIA [None]
  - PLATELET COUNT DECREASED [None]
